FAERS Safety Report 17696519 (Version 1)
Quarter: 2020Q2

REPORT INFORMATION
  Report Type: Spontaneous
  Country: US (occurrence: US)
  Receive Date: 20200423
  Receipt Date: 20200423
  Transmission Date: 20200714
  Serious: Yes (Hospitalization)
  Sender: FDA-Public Use
  Company Number: US-ROCHE-2586168

PATIENT
  Age: 67 Year
  Sex: Female

DRUGS (9)
  1. REMODULIN [Suspect]
     Active Substance: TREPROSTINIL
     Indication: PULMONARY ARTERIAL HYPERTENSION
     Route: 042
     Dates: start: 20130523
  2. CYANOCOBALAMIN. [Concomitant]
     Active Substance: CYANOCOBALAMIN
  3. HYPROMELLOSE [Concomitant]
     Active Substance: HYPROMELLOSES
  4. FLUTICASONE PROPIONATE. [Concomitant]
     Active Substance: FLUTICASONE PROPIONATE
  5. MAGNESIUM OXIDE. [Concomitant]
     Active Substance: MAGNESIUM OXIDE
  6. PREDNISONE. [Concomitant]
     Active Substance: PREDNISONE
  7. CICLOSPORIN [Concomitant]
     Active Substance: CYCLOSPORINE
  8. CELLCEPT [Suspect]
     Active Substance: MYCOPHENOLATE MOFETIL\MYCOPHENOLATE MOFETIL HYDROCHLORIDE
     Indication: PRODUCT USED FOR UNKNOWN INDICATION
     Route: 065
  9. TADALAFIL. [Concomitant]
     Active Substance: TADALAFIL

REACTIONS (3)
  - Sepsis [Unknown]
  - Hypotension [Unknown]
  - Dyspnoea exertional [Unknown]

NARRATIVE: CASE EVENT DATE: 20200228
